FAERS Safety Report 4266027-8 (Version None)
Quarter: 2004Q1

REPORT INFORMATION
  Report Type: 
  Country: None (occurrence: None)
  Receive Date: 20040106
  Receipt Date: 20031126
  Transmission Date: 20041129
  Serious: Yes (Hospitalization)
  Sender: FDA-Public Use
  Company Number: 2003041726

PATIENT
  Age: 72 Year
  Sex: Male
  Weight: 45.2 kg

DRUGS (7)
  1. DIFLUCAN [Suspect]
     Indication: INTERSTITIAL LUNG DISEASE
     Dosage: 100 MG (DAILY), ORAL
     Route: 048
     Dates: start: 20030919, end: 20030924
  2. GATIFLOXACIN (GATIFLOXACIN) [Suspect]
     Indication: INTERSTITIAL LUNG DISEASE
     Dosage: 400 MG (BID), ORAL
     Route: 048
     Dates: start: 20030919, end: 20030924
  3. FUNGUARD [Concomitant]
  4. MEROPENEM (MEROPENEM) [Concomitant]
  5. CEFTRIAXONE [Concomitant]
  6. LANSOPRAZOLE [Concomitant]
  7. BACTRIM [Concomitant]

REACTIONS (7)
  - AGRANULOCYTOSIS [None]
  - LYMPHOCYTE COUNT DECREASED [None]
  - LYMPHOCYTE COUNT INCREASED [None]
  - MONOCYTE COUNT INCREASED [None]
  - NEUTROPHIL COUNT INCREASED [None]
  - WHITE BLOOD CELL COUNT DECREASED [None]
  - WHITE BLOOD CELL COUNT INCREASED [None]
